FAERS Safety Report 4647747-X (Version None)
Quarter: 2005Q2

REPORT INFORMATION
  Report Type: 
  Country: None (occurrence: None)
  Receive Date: 20050427
  Receipt Date: 20050427
  Transmission Date: 20051028
  Serious: Yes (Hospitalization, Other)
  Sender: FDA-Public Use
  Company Number: None

PATIENT
  Sex: Female
  Weight: 103.7 kg

DRUGS (2)
  1. CYCLOPHOSPHAMIDE [Suspect]
     Dosage: 6 CYCLES
     Dates: start: 20050409
  2. DOXORUBICIN HCL [Suspect]
     Dosage: 6 CYCLES
     Dates: start: 20050409

REACTIONS (1)
  - GOUT [None]
